FAERS Safety Report 8779557 (Version 3)
Quarter: 2012Q4

REPORT INFORMATION
  Report Type: 
  Country: JP (occurrence: JP)
  Receive Date: 20120912
  Receipt Date: 20121009
  Transmission Date: 20130627
  Serious: Yes (Other)
  Sender: FDA-Public Use
  Company Number: JP-JNJFOC-20120903272

PATIENT

DRUGS (1)
  1. LOPEMIN [Suspect]
     Indication: PRODUCT USED FOR UNKNOWN INDICATION
     Route: 048

REACTIONS (3)
  - Blood albumin decreased [Unknown]
  - Nutritional condition abnormal [Unknown]
  - Dyspepsia [Unknown]
